FAERS Safety Report 18136234 (Version 1)
Quarter: 2020Q3

REPORT INFORMATION
  Report Type: Spontaneous
  Country: FR (occurrence: FR)
  Receive Date: 20200811
  Receipt Date: 20200811
  Transmission Date: 20201103
  Serious: Yes (Other)
  Sender: FDA-Public Use
  Company Number: NVSC2020FR219505

PATIENT
  Age: 17 Month
  Sex: Female

DRUGS (2)
  1. ZOPHREN [Suspect]
     Active Substance: ONDANSETRON
     Dosage: UNK
     Route: 042
     Dates: start: 20200803
  2. ZOPHREN [Suspect]
     Active Substance: ONDANSETRON
     Indication: ACUTE PROMYELOCYTIC LEUKAEMIA
     Route: 042

REACTIONS (5)
  - Decreased eye contact [Recovered/Resolved]
  - Livedo reticularis [Recovered/Resolved]
  - Product use in unapproved indication [Unknown]
  - Tachycardia [Recovered/Resolved]
  - Cyanosis [Recovered/Resolved]

NARRATIVE: CASE EVENT DATE: 20200803
